FAERS Safety Report 16459815 (Version 1)
Quarter: 2019Q2

REPORT INFORMATION
  Report Type: Spontaneous
  Country: ES (occurrence: ES)
  Receive Date: 20190620
  Receipt Date: 20190620
  Transmission Date: 20190711
  Serious: Yes (Other)
  Sender: FDA-Public Use
  Company Number: ES-ARBOR PHARMACEUTICALS, LLC-ES-2019ARB000983

PATIENT
  Sex: Female

DRUGS (3)
  1. FOLLITROPIN ALFA [Suspect]
     Active Substance: FOLLITROPIN
     Indication: IN VITRO FERTILISATION
     Dosage: UNK
     Route: 065
  2. CETRORELIX [Suspect]
     Active Substance: CETRORELIX
     Indication: IN VITRO FERTILISATION
     Dosage: UNK
     Route: 065
  3. TRIPTODUR [Suspect]
     Active Substance: TRIPTORELIN
     Indication: IN VITRO FERTILISATION
     Dosage: UNK
     Route: 065

REACTIONS (1)
  - Choroidal neovascularisation [Recovered/Resolved]
